FAERS Safety Report 12511339 (Version 1)
Quarter: 2016Q2

REPORT INFORMATION
  Report Type: Spontaneous
  Country: US (occurrence: US)
  Receive Date: 20160629
  Receipt Date: 20160629
  Transmission Date: 20160815
  Serious: No
  Sender: FDA-Public Use
  Company Number: US-EAGLE PHARMACEUTICALS, INC.-US-2016EAG000011

PATIENT

DRUGS (2)
  1. BENDEKA [Suspect]
     Active Substance: BENDAMUSTINE HYDROCHLORIDE
     Indication: CHRONIC LYMPHOCYTIC LEUKAEMIA
     Dosage: UNK, OVER 10 MINUTES WITH 50ML BAG
     Dates: start: 20160307, end: 20160307
  2. BENDEKA [Suspect]
     Active Substance: BENDAMUSTINE HYDROCHLORIDE
     Dosage: UNK, OVER 20 MINUTES WITH 100ML BAG
     Dates: start: 20160308, end: 20160308

REACTIONS (3)
  - Burning sensation [Unknown]
  - Pain [Unknown]
  - Infusion site phlebitis [Not Recovered/Not Resolved]

NARRATIVE: CASE EVENT DATE: 20160307
